FAERS Safety Report 4406436-7 (Version None)
Quarter: 2004Q3

REPORT INFORMATION
  Report Type: 
  Country: None (occurrence: None)
  Receive Date: 20040723
  Receipt Date: 20030801
  Transmission Date: 20050211
  Serious: No
  Sender: FDA-Public Use
  Company Number: US-GLAXOSMITHKLINE-A0419315A

PATIENT
  Age: 50 Year
  Sex: Female

DRUGS (5)
  1. AVANDIA [Suspect]
     Route: 048
     Dates: start: 20030731
  2. GLUCOPHAGE [Concomitant]
  3. PREMARIN [Concomitant]
  4. SYNTHROID [Concomitant]
  5. LOTREL [Concomitant]

REACTIONS (3)
  - ERYTHEMA [None]
  - PRURITUS [None]
  - RASH [None]
